FAERS Safety Report 23109499 (Version 2)
Quarter: 2023Q4

REPORT INFORMATION
  Report Type: Spontaneous
  Country: US (occurrence: US)
  Receive Date: 20231026
  Receipt Date: 20231031
  Transmission Date: 20240110
  Serious: Yes (Other)
  Sender: FDA-Public Use
  Company Number: US-ABBVIE-5467416

PATIENT
  Sex: Male
  Weight: 79 kg

DRUGS (5)
  1. DEPAKOTE [Suspect]
     Active Substance: DIVALPROEX SODIUM
     Indication: Seizure
     Dosage: 1 TABLET?FORM STRENGTH: 500 MG
     Route: 065
     Dates: start: 2012, end: 202309
  2. DEPAKOTE [Suspect]
     Active Substance: DIVALPROEX SODIUM
     Indication: Seizure
     Dosage: FORM STRENGTH: 500 MG
     Route: 065
     Dates: start: 202310
  3. OLANZAPINE [Concomitant]
     Active Substance: OLANZAPINE
     Indication: Mental disorder
  4. LITHIUM [Concomitant]
     Active Substance: LITHIUM
     Indication: Mental disorder
  5. ABILIFY [Concomitant]
     Active Substance: ARIPIPRAZOLE
     Indication: Mental disorder

REACTIONS (7)
  - Cholelithiasis [Recovered/Resolved]
  - Weight decreased [Recovered/Resolved]
  - Aggression [Unknown]
  - Reaction to excipient [Unknown]
  - Decreased appetite [Recovered/Resolved]
  - Therapeutic response shortened [Unknown]
  - Behaviour disorder [Unknown]

NARRATIVE: CASE EVENT DATE: 20170101
